FAERS Safety Report 16279177 (Version 2)
Quarter: 2019Q2

REPORT INFORMATION
  Report Type: Report from Study
  Country: MY (occurrence: MY)
  Receive Date: 20190506
  Receipt Date: 20190517
  Transmission Date: 20190711
  Serious: Yes (Other)
  Sender: FDA-Public Use
  Company Number: PHHY2017MY194475

PATIENT
  Age: 57 Year
  Sex: Female

DRUGS (21)
  1. DEXAMETHASONE. [Concomitant]
     Active Substance: DEXAMETHASONE
     Indication: SPINAL CORD COMPRESSION
     Dosage: 8 OT, UNK
     Route: 048
     Dates: start: 20171217, end: 20171220
  2. DEXAMETHASONE. [Concomitant]
     Active Substance: DEXAMETHASONE
     Dosage: 4 OT, UNK
     Route: 048
     Dates: start: 20171221, end: 20171223
  3. RANITIDINE. [Concomitant]
     Active Substance: RANITIDINE
     Dosage: 50 OT, UNK
     Route: 042
     Dates: start: 20180102, end: 20180104
  4. DEXTROSE. [Concomitant]
     Active Substance: DEXTROSE
     Indication: HYPERKALAEMIA
     Dosage: 10 OT, UNK
     Route: 042
     Dates: start: 20180412, end: 20180412
  5. RANITIDINE. [Concomitant]
     Active Substance: RANITIDINE
     Indication: PROPHYLAXIS
     Dosage: 150 OT, UNK
     Route: 048
     Dates: start: 20171217, end: 20180104
  6. AMLODIPINE [Concomitant]
     Active Substance: AMLODIPINE BESYLATE
     Dosage: 5 OT, UNK
     Route: 048
     Dates: start: 2007, end: 20180412
  7. VOTRIENT [Suspect]
     Active Substance: PAZOPANIB HYDROCHLORIDE
     Indication: RENAL CELL CARCINOMA
     Dosage: 400 OT, UNK
     Route: 048
     Dates: start: 20171112, end: 20180114
  8. CELECOXIB. [Concomitant]
     Active Substance: CELECOXIB
     Indication: PAIN
     Dosage: 200 OT, UNK
     Route: 048
     Dates: start: 20171103, end: 2017
  9. DEXAMETHASONE. [Concomitant]
     Active Substance: DEXAMETHASONE
     Dosage: 8 OT, UNK
     Route: 042
     Dates: start: 20180102, end: 20180104
  10. CARMINATIVE MIXTURE [Concomitant]
     Indication: ABDOMINAL DISTENSION
     Dosage: 10 OT, UNK
     Route: 048
     Dates: start: 20180228, end: 20180307
  11. ZOMETA [Concomitant]
     Active Substance: ZOLEDRONIC ACID
     Indication: MUSCULOSKELETAL DISORDER
     Dosage: 4 OT, UNK
     Route: 042
     Dates: start: 20180116, end: 20180116
  12. ZOMETA [Concomitant]
     Active Substance: ZOLEDRONIC ACID
     Indication: METASTASES TO SPINE
  13. VOTRIENT [Suspect]
     Active Substance: PAZOPANIB HYDROCHLORIDE
     Dosage: 600 OT, UNK
     Route: 048
     Dates: start: 20180228, end: 20180328
  14. OXYNORM [Concomitant]
     Active Substance: OXYCODONE HYDROCHLORIDE
     Indication: PAIN
     Dosage: 10 OT, UNK
     Route: 048
     Dates: start: 20171103, end: 20180104
  15. CALCIUM GLUCONATE. [Concomitant]
     Active Substance: CALCIUM GLUCONATE
     Indication: HYPERKALAEMIA
     Dosage: 10 OT, UNK
     Route: 042
     Dates: start: 20180412, end: 20180412
  16. AMLODIPINE [Concomitant]
     Active Substance: AMLODIPINE BESYLATE
     Indication: HYPERTENSION
     Dosage: 10 MG, QD
     Route: 065
  17. MAXOLON [Concomitant]
     Active Substance: METOCLOPRAMIDE HYDROCHLORIDE
     Indication: PROPHYLAXIS
     Dosage: 10 OT, UNK
     Route: 048
     Dates: start: 20171109, end: 20171123
  18. CELECOXIB. [Concomitant]
     Active Substance: CELECOXIB
     Indication: PAIN IN EXTREMITY
  19. OXYCODONE [Concomitant]
     Active Substance: OXYCODONE
     Indication: PAIN
     Dosage: 10 OT, UNK
     Route: 048
     Dates: start: 20171103, end: 20180104
  20. DEXAMETHASONE. [Concomitant]
     Active Substance: DEXAMETHASONE
     Dosage: 4 OT, UNK
     Route: 048
     Dates: start: 20171224, end: 20171226
  21. VITAMIN B [Concomitant]
     Active Substance: VITAMIN B
     Indication: PRODUCT USED FOR UNKNOWN INDICATION
     Dosage: 1 OT, UNK
     Route: 048
     Dates: start: 20180104, end: 20180204

REACTIONS (6)
  - Neuralgia [Recovered/Resolved]
  - Glomerular filtration rate abnormal [Unknown]
  - Constipation [Recovered/Resolved]
  - Abdominal distension [Recovered/Resolved]
  - Hyperkalaemia [Recovering/Resolving]
  - Blood creatinine abnormal [Unknown]

NARRATIVE: CASE EVENT DATE: 20171217
